FAERS Safety Report 7146198-6 (Version None)
Quarter: 2010Q4

REPORT INFORMATION
  Report Type: 
  Country: None (occurrence: None)
  Receive Date: 20101208
  Receipt Date: 20101126
  Transmission Date: 20110411
  Serious: Yes (Other)
  Sender: FDA-Public Use
  Company Number: GXKR2010GB13445

PATIENT
  Age: 46 Year
  Sex: Male

DRUGS (1)
  1. INDOMETHACIN (NGX) [Suspect]
     Dosage: 75 MG, BID
     Route: 048

REACTIONS (2)
  - MEMORY IMPAIRMENT [None]
  - SOMNOLENCE [None]
